FAERS Safety Report 19907696 (Version 12)
Quarter: 2023Q2

REPORT INFORMATION
  Report Type: Report from Study
  Country: TR (occurrence: TR)
  Receive Date: 20210930
  Receipt Date: 20230407
  Transmission Date: 20230721
  Serious: Yes (Life-Threatening, Hospitalization)
  Sender: FDA-Public Use
  Company Number: TR-ABBVIE-21P-161-4099341-00

PATIENT
  Age: 72 Year
  Sex: Male

DRUGS (19)
  1. VENETOCLAX [Suspect]
     Active Substance: VENETOCLAX
     Indication: Myelodysplastic syndrome
     Dosage: DAYS 1 - 14 OF EACH 28-DAY CYCLE
     Route: 048
     Dates: start: 20210426, end: 20210919
  2. VENETOCLAX [Suspect]
     Active Substance: VENETOCLAX
     Indication: Myelodysplastic syndrome
     Dosage: DAYS 1 - 14 OF EACH 28-DAY CYCLE
     Route: 048
     Dates: start: 20211108, end: 20211219
  3. AZACITIDINE [Suspect]
     Active Substance: AZACITIDINE
     Indication: Myelodysplastic syndrome
     Dosage: 7 DAYS WITHIN THE FIRST 9 CALENDAR DAYS OF EACH 28-DAY CYCLE
     Route: 058
     Dates: start: 20210426, end: 20210914
  4. AZACITIDINE [Suspect]
     Active Substance: AZACITIDINE
     Indication: Myelodysplastic syndrome
     Dosage: 7 DAYS WITHIN THE FIRST 9 CALENDAR DAYS OF EACH 28-DAY CYCLE
     Route: 058
     Dates: start: 20211108, end: 20211217
  5. VALTREX [Concomitant]
     Active Substance: VALACYCLOVIR HYDROCHLORIDE
     Indication: Infection prophylaxis
     Route: 048
     Dates: start: 20210426
  6. TANFLEX GARGARA [Concomitant]
     Indication: Prophylaxis
     Route: 048
     Dates: start: 20210426, end: 20211124
  7. FLUCONAZOLE [Concomitant]
     Active Substance: FLUCONAZOLE
     Indication: Infection prophylaxis
     Route: 048
     Dates: start: 20210426, end: 20211004
  8. DIGOXIN [Concomitant]
     Active Substance: DIGOXIN
     Indication: Myocardial infarction
     Route: 048
     Dates: start: 20210410, end: 20220125
  9. PANTOPRAZOLE SODIUM [Concomitant]
     Active Substance: PANTOPRAZOLE SODIUM
     Indication: Gastrointestinal disorder prophylaxis
     Route: 048
     Dates: start: 20210410, end: 20210928
  10. TAZERACIN [Concomitant]
     Indication: Neutropenia
     Route: 042
     Dates: start: 20210819, end: 20210827
  11. TAZERACIN [Concomitant]
     Indication: Neutropenia
     Route: 042
     Dates: start: 20210907, end: 20210917
  12. TAZERACIN [Concomitant]
     Indication: Neutropenia
     Route: 042
     Dates: start: 20210927, end: 20210928
  13. KYTRIL [Concomitant]
     Active Substance: GRANISETRON HYDROCHLORIDE
     Indication: Premedication
     Dosage: TIME INTERVAL: AS NECESSARY
     Route: 042
     Dates: start: 20210426
  14. HIRUDOID FORTE [Concomitant]
     Indication: Subdural haemorrhage
     Dosage: TIME INTERVAL: AS NECESSARY
     Route: 061
     Dates: start: 20210820
  15. LENOGRASTIM [Concomitant]
     Active Substance: LENOGRASTIM
     Indication: Premedication
     Dosage: TIME INTERVAL: AS NECESSARY: 3/3 MG/ML
     Route: 042
     Dates: start: 20210910
  16. BACTROBAN [Concomitant]
     Active Substance: MUPIROCIN\MUPIROCIN CALCIUM
     Indication: Rash
     Dosage: TIME INTERVAL: AS NECESSARY
     Route: 061
     Dates: start: 20210910, end: 20210927
  17. COSMETICS [Concomitant]
     Active Substance: COSMETICS
     Indication: Rash
     Route: 061
     Dates: start: 20210910, end: 20211207
  18. LEVMONT TB [Concomitant]
     Indication: Infection prophylaxis
     Dosage: 5/10 MG
     Route: 048
     Dates: start: 20210901, end: 20211101
  19. CAVILON BARRIER [Concomitant]
     Indication: Supportive care
     Dosage: TIME INTERVAL: AS NECESSARY
     Route: 061
     Dates: start: 20210426

REACTIONS (3)
  - Bacterial sepsis [Recovered/Resolved]
  - Thrombocytopenia [Not Recovered/Not Resolved]
  - Pneumonia [Recovered/Resolved]

NARRATIVE: CASE EVENT DATE: 20210927
